FAERS Safety Report 6291763-1 (Version None)
Quarter: 2009Q3

REPORT INFORMATION
  Report Type: 
  Country: None (occurrence: None)
  Receive Date: 20090729
  Receipt Date: 20090722
  Transmission Date: 20100115
  Serious: Yes (Other)
  Sender: FDA-Public Use
  Company Number: 8049210

PATIENT
  Age: 46 Year
  Sex: Male

DRUGS (5)
  1. KEPPRA [Suspect]
     Dosage: 7000 MG /D
  2. KEPPRA [Suspect]
     Dosage: 1500 MG/ 2/D PO
     Route: 048
     Dates: start: 20060701, end: 20090721
  3. TRILEPTAL [Concomitant]
  4. CLONAZEPAM [Concomitant]
  5. CLOBAZAM [Concomitant]

REACTIONS (4)
  - ANGER [None]
  - GRAND MAL CONVULSION [None]
  - OVERDOSE [None]
  - REFUSAL OF TREATMENT BY PATIENT [None]
